FAERS Safety Report 10776877 (Version 5)
Quarter: 2016Q1

REPORT INFORMATION
  Report Type: Spontaneous
  Country: US (occurrence: US)
  Receive Date: 20150209
  Receipt Date: 20160203
  Transmission Date: 20160525
  Serious: No
  Sender: FDA-Public Use
  Company Number: US-PFIZER INC-2015052099

PATIENT
  Age: 72 Year
  Sex: Female
  Weight: 63 kg

DRUGS (1)
  1. PREMARIN [Suspect]
     Active Substance: ESTROGENS, CONJUGATED
     Indication: OESTROGEN REPLACEMENT THERAPY
     Dosage: UNK, ALTERNATE DAY

REACTIONS (5)
  - Depression [Unknown]
  - Sinus disorder [Unknown]
  - Intentional product misuse [Unknown]
  - Malaise [Unknown]
  - Insomnia [Unknown]
